FAERS Safety Report 25658524 (Version 2)
Quarter: 2025Q3

REPORT INFORMATION
  Report Type: Spontaneous
  Country: US (occurrence: US)
  Receive Date: 20250808
  Receipt Date: 20250814
  Transmission Date: 20251020
  Serious: No
  Sender: ABBVIE
  Company Number: US-ABBVIE-6405579

PATIENT
  Age: 80 Year
  Sex: Female

DRUGS (1)
  1. UPADACITINIB [Suspect]
     Active Substance: UPADACITINIB
     Indication: Rheumatoid arthritis
     Route: 048
     Dates: start: 202506, end: 202508

REACTIONS (3)
  - Speech disorder [Unknown]
  - Mental disorder [Unknown]
  - Clumsiness [Unknown]

NARRATIVE: CASE EVENT DATE: 20250101
